FAERS Safety Report 5693910-9 (Version None)
Quarter: 2008Q2

REPORT INFORMATION
  Report Type: 
  Country: None (occurrence: None)
  Receive Date: 20080403
  Receipt Date: 20080325
  Transmission Date: 20081010
  Serious: Yes (Other)
  Sender: FDA-Public Use
  Company Number: FR-PFIZER INC-2008027234

PATIENT
  Sex: Female

DRUGS (2)
  1. ATORVASTATIN CALCIUM [Suspect]
     Indication: HYPERCHOLESTEROLAEMIA
  2. CERVOXAN [Concomitant]

REACTIONS (3)
  - CELL DEATH [None]
  - MALAISE [None]
  - TRANSIENT ISCHAEMIC ATTACK [None]
